FAERS Safety Report 22756869 (Version 4)
Quarter: 2023Q4

REPORT INFORMATION
  Report Type: Spontaneous
  Country: US (occurrence: US)
  Receive Date: 20230727
  Receipt Date: 20231003
  Transmission Date: 20240110
  Serious: No
  Sender: FDA-Public Use
  Company Number: US-PFIZER INC-202300257179

PATIENT
  Age: 11 Year
  Sex: Female

DRUGS (1)
  1. GENOTROPIN [Suspect]
     Active Substance: SOMATROPIN
     Indication: Growth hormone deficiency
     Dosage: 1.3 MG, DAILY
     Route: 058
     Dates: start: 202303

REACTIONS (4)
  - Poor quality device used [Unknown]
  - Product reconstitution quality issue [Unknown]
  - Device leakage [Unknown]
  - Device issue [Unknown]
